FAERS Safety Report 6762989-5 (Version None)
Quarter: 2010Q2

REPORT INFORMATION
  Report Type: 
  Country: None (occurrence: None)
  Receive Date: 20100609
  Receipt Date: 20100529
  Transmission Date: 20101027
  Serious: Yes (Hospitalization, Other)
  Sender: FDA-Public Use
  Company Number: US-PFIZER INC-2010068155

PATIENT
  Sex: Female
  Weight: 104 kg

DRUGS (5)
  1. CHANTIX [Suspect]
     Indication: SMOKING CESSATION THERAPY
     Dosage: 0.5 MG, 1X/DAY
     Route: 048
  2. PREDNISONE [Suspect]
     Indication: CHRONIC OBSTRUCTIVE PULMONARY DISEASE
     Dosage: UNK
     Dates: start: 20100101, end: 20100529
  3. SEROQUEL [Suspect]
     Indication: DEPRESSION
     Dosage: UNK
     Dates: start: 20100501
  4. LASIX [Concomitant]
     Dosage: UNK, 3X/DAY
  5. PRILOSEC [Concomitant]
     Dosage: UNK

REACTIONS (5)
  - BLOOD GLUCOSE INCREASED [None]
  - CHRONIC OBSTRUCTIVE PULMONARY DISEASE [None]
  - DEPRESSION [None]
  - PRODUCT LABEL ISSUE [None]
  - SKIN EXFOLIATION [None]
